FAERS Safety Report 5506974-X (Version None)
Quarter: 2007Q4

REPORT INFORMATION
  Report Type: 
  Country: None (occurrence: None)
  Receive Date: 20071102
  Receipt Date: 20071024
  Transmission Date: 20080405
  Serious: Yes (Hospitalization)
  Sender: FDA-Public Use
  Company Number: US-CVT-070175

PATIENT
  Age: 48 Year
  Sex: Female

DRUGS (17)
  1. RANEXA [Suspect]
     Indication: ANGINA PECTORIS
     Dosage: 500 MG, QD, ORAL
     Route: 048
     Dates: start: 20070309, end: 20070501
  2. ROBAXIN [Concomitant]
  3. HYDROCODONE BITARTRATE [Concomitant]
  4. DAYPRO [Concomitant]
  5. NEXIUM [Concomitant]
  6. DURAGESIC-100 [Concomitant]
  7. ATENOLOL [Concomitant]
  8. HYDROCHLOROTHIAZIDE [Concomitant]
  9. PROZAC [Concomitant]
  10. POTASSIUM CHLORIDE [Concomitant]
  11. SIMVASTATIN [Concomitant]
  12. NITROGLYCERIN [Concomitant]
  13. LIDODERM [Concomitant]
  14. TOPAMAX [Concomitant]
  15. VENLAFAXINE HCL [Concomitant]
  16. ALLEGRA(FEXOFENADINE HYDROCHLORIDE) [Concomitant]
  17. FERROUS SULFATE TAB [Concomitant]

REACTIONS (2)
  - BLOOD URINE PRESENT [None]
  - URINARY BLADDER HAEMORRHAGE [None]
